FAERS Safety Report 25806069 (Version 2)
Quarter: 2025Q3

REPORT INFORMATION
  Report Type: Report from Study
  Country: US (occurrence: US)
  Receive Date: 20250916
  Receipt Date: 20250924
  Transmission Date: 20251020
  Serious: Yes (Death, Other)
  Sender: SUNOVION
  Company Number: US-SMPA-2025SPA011883

PATIENT
  Age: 74 Year
  Sex: Male

DRUGS (18)
  1. ORGOVYX [Suspect]
     Active Substance: RELUGOLIX
     Indication: Prostate cancer
     Route: 048
  2. ORGOVYX [Suspect]
     Active Substance: RELUGOLIX
     Route: 048
  3. ALBUTEROL SULFATE [Concomitant]
     Active Substance: ALBUTEROL SULFATE
  4. ATORVASTATIN [Concomitant]
     Active Substance: ATORVASTATIN
  5. CETIRIZINE [Concomitant]
     Active Substance: CETIRIZINE HYDROCHLORIDE
  6. CHLORTHALIDONE [Concomitant]
     Active Substance: CHLORTHALIDONE
  7. ESCITALOPRAM [Concomitant]
     Active Substance: ESCITALOPRAM OXALATE
  8. FAMOTIDINE [Concomitant]
     Active Substance: FAMOTIDINE
  9. KLOR-CON [Concomitant]
     Active Substance: POTASSIUM CHLORIDE
  10. LEVOFLOXACIN [Concomitant]
     Active Substance: LEVOFLOXACIN
  11. LISINOPRIL [Concomitant]
     Active Substance: LISINOPRIL
  12. NUBEQA [Concomitant]
     Active Substance: DAROLUTAMIDE
  13. OXYCODONE [Concomitant]
     Active Substance: OXYCODONE
  14. POSLUMA [Concomitant]
     Active Substance: FLOTUFOLASTAT F-18
  15. TAMSULOSIN [Concomitant]
     Active Substance: TAMSULOSIN
  16. TIOTROPIUM [Concomitant]
     Active Substance: TIOTROPIUM
  17. TOBRAMYCIN [Concomitant]
     Active Substance: TOBRAMYCIN
  18. ASPIRIN [Concomitant]
     Active Substance: ASPIRIN

REACTIONS (1)
  - Death [Fatal]
